FAERS Safety Report 5333537-1 (Version None)
Quarter: 2007Q1

REPORT INFORMATION
  Report Type: 
  Country: None (occurrence: None)
  Receive Date: 20070310
  Receipt Date: 20061110
  Transmission Date: 20070707
  Serious: No
  Sender: FDA-Public Use
  Company Number: 2006-BP-13140BP

PATIENT
  Sex: Female

DRUGS (12)
  1. SPIRIVA [Suspect]
     Indication: CHRONIC OBSTRUCTIVE PULMONARY DISEASE
     Dosage: 18 MCG (18 MCG, 1 IN 1 D), IH
     Route: 055
     Dates: start: 20040701
  2. ADVAIR (SERETIDE) [Concomitant]
  3. GEMFIBROZIL [Concomitant]
  4. CLONAZEPAM [Concomitant]
  5. NORVASC [Concomitant]
  6. FENTANYL [Concomitant]
  7. ATENOLOL [Concomitant]
  8. ASPIRIN [Concomitant]
  9. OMEPRAZOLE [Concomitant]
  10. PROZAC [Concomitant]
  11. FOSAMAX [Concomitant]
  12. CALCIUM (CALCIUM) [Concomitant]

REACTIONS (2)
  - DYSPHONIA [None]
  - PHARYNGOLARYNGEAL PAIN [None]
